FAERS Safety Report 18577480 (Version 1)
Quarter: 2020Q4

REPORT INFORMATION
  Report Type: Report from Study
  Country: NL (occurrence: NL)
  Receive Date: 20201204
  Receipt Date: 20201204
  Transmission Date: 20210114
  Serious: Yes (Hospitalization, Other)
  Sender: FDA-Public Use
  Company Number: NL-GW PHARMA-201801NLGW0055

PATIENT

DRUGS (8)
  1. TOPAMAX [Concomitant]
     Active Substance: TOPIRAMATE
     Indication: EPILEPSY
     Dosage: 200 MILLIGRAM, BID
     Route: 048
     Dates: start: 20150112
  2. DEPAKINE [Concomitant]
     Active Substance: VALPROATE SODIUM
     Indication: EPILEPSY
     Dosage: 600 MILLIGRAM, BID
     Route: 048
     Dates: start: 20170915
  3. EPIDIOLEX [Suspect]
     Active Substance: CANNABIDIOL
     Dosage: 25 MG/KG, 1250 MILLIGRAM, QD
     Route: 048
     Dates: start: 20180119, end: 20180122
  4. SIROLIMUS. [Concomitant]
     Active Substance: SIROLIMUS
     Indication: TUBEROUS SCLEROSIS COMPLEX
     Dosage: UNK UNK, QD
     Route: 061
     Dates: start: 20150824
  5. EPIDIOLEX [Suspect]
     Active Substance: CANNABIDIOL
     Indication: TUBEROUS SCLEROSIS COMPLEX
     Dosage: 50 MG/KG, 2500 MILLIGRAM, QD
     Route: 048
     Dates: start: 20180105, end: 20180118
  6. EPIDIOLEX [Suspect]
     Active Substance: CANNABIDIOL
     Dosage: 8.6 MG/KG, 430 MILLIGRAM, QD
     Route: 048
     Dates: start: 20180123, end: 20180130
  7. CLOBAZAM. [Concomitant]
     Active Substance: CLOBAZAM
     Indication: EPILEPSY
     Dosage: 20 MILLIGRAM, QD
     Route: 048
     Dates: start: 20170915
  8. PARACETAMOL [Concomitant]
     Active Substance: ACETAMINOPHEN
     Indication: PRODUCT USED FOR UNKNOWN INDICATION
     Dosage: 500 MILLIGRAM, QID
     Route: 048

REACTIONS (2)
  - Transaminases increased [Recovered/Resolved]
  - Dehydration [Recovered/Resolved]

NARRATIVE: CASE EVENT DATE: 20180118
